FAERS Safety Report 9394453 (Version 2)
Quarter: 2013Q3

REPORT INFORMATION
  Report Type: Spontaneous
  Country: US (occurrence: US)
  Receive Date: 20130711
  Receipt Date: 20130813
  Transmission Date: 20140515
  Serious: No
  Sender: FDA-Public Use
  Company Number: US-PFIZER INC-2013200179

PATIENT
  Sex: Female

DRUGS (1)
  1. REVATIO [Suspect]
     Dosage: UNK

REACTIONS (6)
  - Visual impairment [Unknown]
  - Memory impairment [Unknown]
  - Headache [Unknown]
  - Insomnia [Unknown]
  - Back pain [Unknown]
  - Psychomotor hyperactivity [Unknown]
